FAERS Safety Report 6515857-8 (Version None)
Quarter: 2009Q4

REPORT INFORMATION
  Report Type: 
  Country: None (occurrence: None)
  Receive Date: 20091223
  Receipt Date: 20091216
  Transmission Date: 20100525
  Serious: Yes (Hospitalization)
  Sender: FDA-Public Use
  Company Number: US-AMGEN-QUU349392

PATIENT
  Sex: Female
  Weight: 119.4 kg

DRUGS (5)
  1. ENBREL [Suspect]
     Indication: RHEUMATOID ARTHRITIS
     Route: 058
     Dates: start: 20090410
  2. ARAVA [Concomitant]
     Route: 048
  3. SULFASALAZINE [Concomitant]
     Route: 048
  4. PLAQUENIL [Concomitant]
     Route: 048
  5. PREDNISONE [Concomitant]

REACTIONS (1)
  - POST PROCEDURAL COMPLICATION [None]
